FAERS Safety Report 11178761 (Version 2)
Quarter: 2015Q2

REPORT INFORMATION
  Report Type: Spontaneous
  Country: DE (occurrence: DE)
  Receive Date: 20150610
  Receipt Date: 20150619
  Transmission Date: 20150821
  Serious: Yes (Other)
  Sender: FDA-Public Use
  Company Number: DE-ABBVIE-15P-062-1405334-00

PATIENT
  Age: 57 Year
  Sex: Male
  Weight: 95 kg

DRUGS (7)
  1. SPIRONOLACTON [Concomitant]
     Active Substance: SPIRONOLACTONE
     Indication: OEDEMA PERIPHERAL
     Route: 048
  2. TORASEMIDE [Concomitant]
     Active Substance: TORSEMIDE
     Indication: OEDEMA PERIPHERAL
     Route: 048
  3. VIEKIRAX [Suspect]
     Active Substance: OMBITASVIR\PARITAPREVIR\RITONAVIR
     Indication: HEPATITIS C
     Route: 048
     Dates: start: 20150501, end: 20150505
  4. EXVIERA [Suspect]
     Active Substance: DASABUVIR
     Indication: HEPATITIS C
     Route: 048
     Dates: start: 20150501, end: 20150505
  5. KALINOR [Concomitant]
     Active Substance: POTASSIUM CITRATE
     Indication: HYPOKALAEMIA
     Route: 048
  6. RIBAVIRIN. [Suspect]
     Active Substance: RIBAVIRIN
     Indication: HEPATITIS C
     Route: 048
     Dates: start: 20150501, end: 20150505
  7. ASPIRIN. [Concomitant]
     Active Substance: ASPIRIN
     Indication: ARTERIAL OCCLUSIVE DISEASE
     Route: 048

REACTIONS (2)
  - Blister [Not Recovered/Not Resolved]
  - Dermatitis allergic [Not Recovered/Not Resolved]

NARRATIVE: CASE EVENT DATE: 20150502
